FAERS Safety Report 8265803-4 (Version None)
Quarter: 2012Q2

REPORT INFORMATION
  Report Type: 
  Country: None (occurrence: None)
  Receive Date: 20120406
  Receipt Date: 20120328
  Transmission Date: 20120825
  Serious: Yes (Other)
  Sender: FDA-Public Use
  Company Number: US-ASTRAZENECA-2011SE01195

PATIENT
  Age: 62 Year
  Sex: Female
  Weight: 72.6 kg

DRUGS (11)
  1. ZOLPIDEM [Concomitant]
  2. CEPHALEXIN [Concomitant]
  3. PULMICORT [Suspect]
     Route: 055
     Dates: start: 20050626
  4. RHINOCORT [Suspect]
     Route: 045
  5. KLOR-CON [Concomitant]
  6. PULMICORT [Suspect]
     Route: 055
  7. COUMADIN [Concomitant]
  8. TRAMADOL HCL [Concomitant]
  9. HYDROCHLOROT [Concomitant]
  10. ENABLEX [Concomitant]
  11. SULFAMETHOXAZOLE AND TRIMETHOPRIM [Concomitant]
     Dosage: 800-160

REACTIONS (6)
  - THROMBOSIS [None]
  - MALAISE [None]
  - ASTHMA [None]
  - UPPER RESPIRATORY TRACT INFECTION [None]
  - OFF LABEL USE [None]
  - DEEP VEIN THROMBOSIS [None]
